FAERS Safety Report 8955633 (Version 1)
Quarter: 2012Q4

REPORT INFORMATION
  Report Type: 
  Country: US (occurrence: US)
  Receive Date: 20121207
  Receipt Date: 20121207
  Transmission Date: 20130627
  Serious: No
  Sender: FDA-Public Use
  Company Number: US-VERTEX PHARMACEUTICALS INC.-2012-025671

PATIENT
  Age: 49 Year
  Sex: Male

DRUGS (5)
  1. VX-950 (TELAPREVIR) [Suspect]
     Indication: HEPATITIS C
     Dosage: UNK
     Route: 048
  2. PEGASYS [Suspect]
     Indication: HEPATITIS C
  3. RIBAVIRIN [Concomitant]
     Indication: HEPATITIS C
     Dosage: 200 mg, UNK
  4. B-12 ACTIVE [Concomitant]
     Dosage: 1 mg, UNK
  5. ZINC [Concomitant]
     Dosage: 50 mg, UNK

REACTIONS (8)
  - Influenza like illness [Unknown]
  - Irritability [Unknown]
  - Injection site bruising [Unknown]
  - Injection site haemorrhage [Unknown]
  - Insomnia [Unknown]
  - Rash [Unknown]
  - Anaemia [Unknown]
  - Dysgeusia [Unknown]
